FAERS Safety Report 13771217 (Version 1)
Quarter: 2017Q3

REPORT INFORMATION
  Report Type: Spontaneous
  Country: US (occurrence: US)
  Receive Date: 20170720
  Receipt Date: 20170720
  Transmission Date: 20171127
  Serious: Yes (Hospitalization, Other)
  Sender: FDA-Public Use
  Company Number: None

PATIENT
  Age: 31 Year
  Sex: Male
  Weight: 67.5 kg

DRUGS (3)
  1. RISPERDAL [Concomitant]
     Active Substance: RISPERIDONE
  2. DEPAKOTE [Concomitant]
     Active Substance: DIVALPROEX SODIUM
  3. CLOZARIL [Suspect]
     Active Substance: CLOZAPINE
     Indication: SCHIZOAFFECTIVE DISORDER
     Dosage: ?          OTHER DOSE:MG;?
     Route: 048
     Dates: start: 20170607, end: 20170622

REACTIONS (7)
  - Diarrhoea [None]
  - Malaise [None]
  - Pain [None]
  - White blood cell count increased [None]
  - Pyrexia [None]
  - Nausea [None]
  - Vomiting [None]

NARRATIVE: CASE EVENT DATE: 20170618
